FAERS Safety Report 6732457-5 (Version None)
Quarter: 2010Q2

REPORT INFORMATION
  Report Type: 
  Country: None (occurrence: None)
  Receive Date: 20100519
  Receipt Date: 20100512
  Transmission Date: 20101027
  Serious: Yes (Other)
  Sender: FDA-Public Use
  Company Number: GXKR2010DE05296

PATIENT
  Age: 60 Year
  Sex: Male
  Weight: 71 kg

DRUGS (16)
  1. CEFTRIAXON HEXAL (NGX) [Suspect]
     Dosage: 2000 G, QD
     Route: 042
     Dates: start: 20070728, end: 20070802
  2. CLARITHROMYCIN [Suspect]
     Dosage: 1 DF, BID
     Dates: start: 20070727, end: 20070802
  3. STIBIUM D6 [Concomitant]
  4. BRYOPHYLLUM D5 CON D7 [Concomitant]
  5. ARGENTUM D20 [Concomitant]
  6. BRYOPHYLLUM 50% [Concomitant]
  7. MINIUM D6 [Concomitant]
  8. CIPROFLOXACIN ^CINFA^ [Concomitant]
  9. CARBAMAZEPINE [Concomitant]
  10. METOPROLOL ^RATIOPHARM^ [Concomitant]
  11. KALINOR RETARD [Concomitant]
  12. ENOXAPARIN SODIUM [Concomitant]
  13. PHOSPHORUS D8 [Concomitant]
  14. NEURO ^LICHTENSTEIN^ [Concomitant]
  15. NEURO-AS [Concomitant]
  16. HEPATODORON [Concomitant]

REACTIONS (3)
  - HYPERSENSITIVITY [None]
  - PYREXIA [None]
  - RASH MACULO-PAPULAR [None]
